FAERS Safety Report 6115284-1 (Version None)
Quarter: 2009Q1

REPORT INFORMATION
  Report Type: 
  Country: None (occurrence: None)
  Receive Date: 20090313
  Receipt Date: 20090302
  Transmission Date: 20090719
  Serious: Yes (Hospitalization)
  Sender: FDA-Public Use
  Company Number: DE-ELI_LILLY_AND_COMPANY-DE200903000904

PATIENT
  Age: 67 Year
  Sex: Female

DRUGS (5)
  1. FORTEO [Suspect]
     Indication: OSTEOPOROSIS
     Dosage: 20 UG, DAILY (1/D)
     Route: 058
     Dates: start: 20080529
  2. DICLOFENAC HYDROXYETHYLPYRROLIDINE [Concomitant]
     Indication: BACK PAIN
     Dosage: UNK, UNKNOWN
     Route: 065
  3. CALCIMAGON-D 3 [Concomitant]
     Dosage: UNK, UNKNOWN
     Route: 065
  4. MARCUMAR [Concomitant]
     Dosage: UNK, UNKNOWN
     Route: 065
  5. ANTIBIOTICS [Concomitant]
     Dosage: UNK, UNKNOWN
     Route: 065

REACTIONS (3)
  - BODY TEMPERATURE INCREASED [None]
  - BRONCHITIS [None]
  - LUNG INFECTION [None]
